FAERS Safety Report 13155684 (Version 1)
Quarter: 2017Q1

REPORT INFORMATION
  Report Type: Spontaneous
  Country: US (occurrence: US)
  Receive Date: 20170126
  Receipt Date: 20170126
  Transmission Date: 20170428
  Serious: No
  Sender: FDA-Public Use
  Company Number: US-ROCHE-1059163

PATIENT
  Sex: Female

DRUGS (1)
  1. VALIUM [Suspect]
     Active Substance: DIAZEPAM
     Indication: PRODUCT USED FOR UNKNOWN INDICATION

REACTIONS (7)
  - Restless legs syndrome [Unknown]
  - Anxiety [Unknown]
  - Product quality issue [Unknown]
  - Drug intolerance [Unknown]
  - Agitation [Unknown]
  - Palpitations [Unknown]
  - Insomnia [Unknown]
